FAERS Safety Report 7983128-9 (Version None)
Quarter: 2011Q4

REPORT INFORMATION
  Report Type: 
  Country: None (occurrence: None)
  Receive Date: 20111215
  Receipt Date: 20111207
  Transmission Date: 20120403
  Serious: Yes (Other)
  Sender: FDA-Public Use
  Company Number: GB-JNJFOC-20111204466

PATIENT
  Sex: Female

DRUGS (1)
  1. STELARA [Suspect]
     Indication: PRODUCT USED FOR UNKNOWN INDICATION
     Dosage: FOR 5 MONTHS
     Route: 058

REACTIONS (6)
  - MALAISE [None]
  - FATIGUE [None]
  - BLOOD URINE PRESENT [None]
  - WEIGHT DECREASED [None]
  - VITAMIN B12 DEFICIENCY [None]
  - URINE ODOUR ABNORMAL [None]
